FAERS Safety Report 11855364 (Version 1)
Quarter: 2015Q4

REPORT INFORMATION
  Report Type: Spontaneous
  Country: TR (occurrence: TR)
  Receive Date: 20151221
  Receipt Date: 20151221
  Transmission Date: 20160305
  Serious: Yes (Hospitalization)
  Sender: FDA-Public Use
  Company Number: TR-MYLANLABS-2015M1045499

PATIENT

DRUGS (6)
  1. QUETIAPINE [Concomitant]
     Active Substance: QUETIAPINE
     Indication: BIPOLAR DISORDER
     Route: 065
  2. RAMIPRIL. [Concomitant]
     Active Substance: RAMIPRIL
     Indication: HYPERTENSION
     Dosage: 2.5MG DAILY
     Route: 065
  3. LITHIUM. [Suspect]
     Active Substance: LITHIUM
     Indication: BIPOLAR DISORDER
     Route: 065
  4. BENSERAZIDE W/LEVODOPA [Concomitant]
     Indication: PARKINSON^S DISEASE
     Dosage: 100MG (LEVODOPA)/25MG (BENSERAZIDE) THREE TIMES DAILY
     Route: 065
  5. IBANDRONIC ACID [Concomitant]
     Active Substance: IBANDRONIC ACID
     Indication: OSTEOPOROSIS
     Dosage: 150MG MONTHLY
     Route: 065
  6. A CAL D [Concomitant]
     Indication: OSTEOPOROSIS
     Dosage: 1000MG (CALCIUM)/880MG (COLECALCIFEROL) DAILY
     Route: 065

REACTIONS (6)
  - Sinus bradycardia [Recovered/Resolved]
  - Toxicity to various agents [Recovering/Resolving]
  - Hypercalcaemia [Recovered/Resolved]
  - Hyperparathyroidism [Unknown]
  - Euthyroid sick syndrome [Unknown]
  - Nephrogenic diabetes insipidus [Recovering/Resolving]
